FAERS Safety Report 6120408-6 (Version None)
Quarter: 2009Q1

REPORT INFORMATION
  Report Type: 
  Country: None (occurrence: None)
  Receive Date: 20090316
  Receipt Date: 20090316
  Transmission Date: 20090719
  Serious: Yes (Other)
  Sender: FDA-Public Use
  Company Number: None

PATIENT
  Age: 81 Year
  Sex: Female
  Weight: 47.6277 kg

DRUGS (2)
  1. RESTASIS [Suspect]
     Indication: DRY EYE
     Dosage: 1 DROP 2X DAILY IN EYES
     Dates: start: 20080201, end: 20080901
  2. RESTASIS [Suspect]
     Indication: EYE IRRITATION
     Dosage: 1 DROP 2X DAILY IN EYES
     Dates: start: 20080201, end: 20080901

REACTIONS (2)
  - BREAST DISCOMFORT [None]
  - BREAST PAIN [None]
